FAERS Safety Report 4284347-8 (Version None)
Quarter: 2004Q1

REPORT INFORMATION
  Report Type: 
  Country: None (occurrence: None)
  Receive Date: 20040130
  Receipt Date: 20040130
  Transmission Date: 20041129
  Serious: No
  Sender: FDA-Public Use
  Company Number: None

PATIENT
  Age: 44 Year
  Sex: Female
  Weight: 58.9676 kg

DRUGS (1)
  1. TOPAMAX [Suspect]
     Indication: BIPOLAR DISORDER
     Dosage: 25 MG, 2 PO, BID
     Route: 048
     Dates: start: 20031217, end: 20040111

REACTIONS (3)
  - COUGH [None]
  - DYSPNOEA [None]
  - RESPIRATORY DISORDER [None]
